FAERS Safety Report 24225064 (Version 1)
Quarter: 2024Q3

REPORT INFORMATION
  Report Type: Report from Study
  Country: US (occurrence: US)
  Receive Date: 20240820
  Receipt Date: 20240820
  Transmission Date: 20241016
  Serious: Yes (Hospitalization)
  Sender: JOHNSON AND JOHNSON
  Company Number: US-JNJFOC-20240842176

PATIENT
  Age: 81 Year
  Sex: Female

DRUGS (1)
  1. SPRAVATO [Suspect]
     Active Substance: ESKETAMINE
     Indication: Depression
     Dosage: 56 MG, 1 TOTAL DOSES
     Dates: start: 20240813, end: 20240813

REACTIONS (3)
  - Adverse event [Unknown]
  - Sedation [Unknown]
  - Dissociation [Unknown]

NARRATIVE: CASE EVENT DATE: 20240813
